FAERS Safety Report 17026198 (Version 1)
Quarter: 2019Q4

REPORT INFORMATION
  Report Type: Spontaneous
  Country: US (occurrence: US)
  Receive Date: 20191009
  Receipt Date: 20191009
  Transmission Date: 20200122
  Serious: No
  Sender: FDA-Public Use
  Company Number: None

PATIENT
  Age: 79 Year
  Sex: Female

DRUGS (1)
  1. VERZENIO [Suspect]
     Active Substance: ABEMACICLIB
     Dosage: TODAY - PRESENT
     Route: 048

REACTIONS (3)
  - Therapy change [None]
  - Dysphagia [None]
  - Diarrhoea [None]

NARRATIVE: CASE EVENT DATE: 20191009
